FAERS Safety Report 9605692 (Version 1)
Quarter: 2013Q4

REPORT INFORMATION
  Report Type: Not Available
  Country: SE (occurrence: SE)
  Receive Date: 20131008
  Receipt Date: 20131008
  Transmission Date: 20140711
  Serious: Yes (Hospitalization)
  Sender: FDA-Public Use
  Company Number: SE-NAPPMUNDI-GBR-2013-0015894

PATIENT
  Age: 86 Year
  Sex: Female

DRUGS (1)
  1. OXYCONTIN DEPOTTABLETIT [Suspect]
     Indication: PAIN
     Route: 048

REACTIONS (3)
  - Fall [Unknown]
  - Dizziness [Unknown]
  - Somnolence [Unknown]
